FAERS Safety Report 13952345 (Version 1)
Quarter: 2017Q3

REPORT INFORMATION
  Report Type: Spontaneous
  Country: US (occurrence: US)
  Receive Date: 20170911
  Receipt Date: 20170911
  Transmission Date: 20171128
  Serious: No
  Sender: FDA-Public Use
  Company Number: US-TEVA-710247USA

PATIENT
  Sex: Male
  Weight: 79.45 kg

DRUGS (1)
  1. FENTANYL. [Suspect]
     Active Substance: FENTANYL
     Route: 062
     Dates: start: 201512

REACTIONS (6)
  - Constipation [Unknown]
  - Pouchitis [Unknown]
  - Agitation [Recovered/Resolved]
  - Aggression [Recovered/Resolved]
  - Withdrawal syndrome [Unknown]
  - Vision blurred [Unknown]
